FAERS Safety Report 21654099 (Version 2)
Quarter: 2022Q4

REPORT INFORMATION
  Report Type: Spontaneous
  Country: ES (occurrence: ES)
  Receive Date: 20221129
  Receipt Date: 20221202
  Transmission Date: 20230113
  Serious: Yes (Other)
  Sender: FDA-Public Use
  Company Number: ES-OCTA-LIT03322ES

PATIENT
  Age: 14 Day
  Sex: Female

DRUGS (1)
  1. PRIVIGEN [Suspect]
     Active Substance: HUMAN IMMUNOGLOBULIN G
     Indication: Isoimmune haemolytic disease
     Route: 042

REACTIONS (1)
  - Necrotising enterocolitis neonatal [Recovered/Resolved]
